FAERS Safety Report 5287903-3 (Version None)
Quarter: 2007Q2

REPORT INFORMATION
  Report Type: 
  Country: None (occurrence: None)
  Receive Date: 20070405
  Receipt Date: 20070329
  Transmission Date: 20071010
  Serious: Yes (Death, Hospitalization)
  Sender: FDA-Public Use
  Company Number: US-SHR-US-2006-035704

PATIENT
  Age: 58 Year
  Sex: Male
  Weight: 121.6 kg

DRUGS (31)
  1. CAMPATH [Suspect]
     Dosage: 30 MG, D1-5 EVERY 28 DAYS
     Route: 058
     Dates: start: 20060605, end: 20060609
  2. CAMPATH [Suspect]
     Dosage: 30 MG, D1-5 EVERY 28 DAYS
     Route: 058
     Dates: start: 20060710, end: 20060714
  3. CAMPATH [Suspect]
     Dosage: 30 MG, D1-5 EVERY 28 DAYS
     Route: 058
     Dates: start: 20060807, end: 20060811
  4. CAMPATH [Suspect]
     Dosage: 30 MG, D1-5 EVERY 28 DAYS
     Route: 058
     Dates: start: 20060905, end: 20060911
  5. CAMPATH [Suspect]
     Dosage: 30 MG, D1-5 EVERY 28 DAYS
     Route: 058
     Dates: start: 20061023, end: 20061027
  6. FLUDARA [Suspect]
     Dosage: 60 MG/D, D1-5 EVERY 28 DAYS
     Route: 042
     Dates: start: 20060605, end: 20060609
  7. FLUDARA [Suspect]
     Dosage: 60 MG/D, D1-5 EVERY 28 DAYS
     Route: 042
     Dates: start: 20060710, end: 20060714
  8. FLUDARA [Suspect]
     Dosage: 60 MG/D, D1-5 EVERY 28 DAYS
     Route: 042
     Dates: start: 20060807, end: 20060811
  9. FLUDARA [Suspect]
     Dosage: 60 MG/D, D1-5 EVERY 28 DAYS
     Route: 042
     Dates: start: 20060905, end: 20060911
  10. FLUDARA [Suspect]
     Dosage: 30 MG/DAY, D1-5 EVERY 28 DAY
     Route: 042
     Dates: start: 20061023, end: 20061027
  11. NEULASTA [Concomitant]
  12. LEVAQUIN [Concomitant]
     Dosage: 500 MG, 1X/DAY
     Dates: start: 20061102
  13. TYLENOL [Concomitant]
     Dosage: 650 MG, ROUND THE CLOCK
     Route: 048
     Dates: start: 20061101
  14. TYLENOL [Concomitant]
     Dosage: 650 MG, 1X/DAY
     Route: 048
     Dates: start: 20060605, end: 20060609
  15. BACTRIM DS [Concomitant]
     Dosage: 2 TABS MWF
     Dates: end: 20061101
  16. FAMVIR                                  /UNK/ [Concomitant]
     Dosage: 250 MG, 2X/DAY
  17. FAMVIR                                  /UNK/ [Concomitant]
     Dosage: 250 MG, 2X/DAY
     Route: 048
     Dates: start: 20060605, end: 20061114
  18. FLAGYL [Concomitant]
     Dates: start: 20061109
  19. GLYBURIDE [Concomitant]
     Dosage: 5 MG, 2X/DAY
     Route: 048
     Dates: end: 20061101
  20. METFORMIN HCL [Concomitant]
     Dosage: 500 MG, 2X/DAY
     Route: 048
     Dates: end: 20061101
  21. NIFEDIPINE [Concomitant]
     Dosage: 50 MG, 1X/DAY
     Route: 048
  22. LISINOPRIL [Concomitant]
     Dosage: 10 MG, 1X/DAY
     Route: 048
  23. LOVASTATIN [Concomitant]
     Dosage: 20 MG, 1X/DAY
     Route: 048
  24. EPOGEN [Concomitant]
     Dates: start: 20061101
  25. NEUPOGEN [Concomitant]
     Dates: start: 20061101
  26. ZOSYN [Concomitant]
     Dates: start: 20061101, end: 20061101
  27. DIFLUCAN [Concomitant]
     Dates: start: 20061101, end: 20061101
  28. VANCOMYCIN [Concomitant]
     Dosage: UNK, 1 DOSE
     Dates: start: 20061101, end: 20061101
  29. INSULIN [Concomitant]
     Dates: start: 20061101
  30. ALLOPURINOL [Concomitant]
     Indication: PROPHYLAXIS
     Dosage: 300 MG, 1X/DAY
     Route: 048
     Dates: start: 20060603, end: 20060617
  31. BACTRIM DS [Concomitant]
     Dosage: 1 TAB(S), 2 DOSES
     Route: 048
     Dates: start: 20060605, end: 20061114

REACTIONS (12)
  - BACTERAEMIA [None]
  - COAGULOPATHY [None]
  - HAEMORRHAGE [None]
  - HEPATIC FAILURE [None]
  - HYPOTENSION [None]
  - HYPOXIA [None]
  - INTESTINAL ISCHAEMIA [None]
  - MULTI-ORGAN FAILURE [None]
  - PANCYTOPENIA [None]
  - PYREXIA [None]
  - RENAL FAILURE ACUTE [None]
  - RESPIRATORY FAILURE [None]
